FAERS Safety Report 4908292-7 (Version None)
Quarter: 2006Q1

REPORT INFORMATION
  Report Type: 
  Country: None (occurrence: None)
  Receive Date: 20060210
  Receipt Date: 20060130
  Transmission Date: 20060701
  Serious: Yes (Life-Threatening, Hospitalization)
  Sender: FDA-Public Use
  Company Number: FR-JNJFOC-20051200371

PATIENT
  Age: 20 Year
  Sex: Male

DRUGS (3)
  1. CONTRAMAL [Suspect]
     Indication: POSTOPERATIVE ANALGESIA
     Route: 042
  2. KETOPROFEN [Suspect]
     Indication: POSTOPERATIVE ANALGESIA
     Route: 042
  3. PERFALGAN [Suspect]
     Indication: POSTOPERATIVE ANALGESIA
     Route: 042

REACTIONS (2)
  - DYSPNOEA [None]
  - PULMONARY OEDEMA [None]
